FAERS Safety Report 6966528-5 (Version None)
Quarter: 2010Q3

REPORT INFORMATION
  Report Type: 
  Country: None (occurrence: None)
  Receive Date: 20100906
  Receipt Date: 20100826
  Transmission Date: 20110219
  Serious: Yes (Hospitalization)
  Sender: FDA-Public Use
  Company Number: 130249

PATIENT
  Age: 50 Year
  Sex: Female

DRUGS (7)
  1. AVONEX [Suspect]
     Indication: MULTIPLE SCLEROSIS
     Route: 030
     Dates: start: 19981001, end: 19990901
  2. AVONEX [Suspect]
     Route: 030
     Dates: start: 20000810, end: 20010214
  3. AVONEX [Suspect]
     Route: 030
     Dates: start: 20070501, end: 20070903
  4. AVONEX [Suspect]
     Route: 030
     Dates: start: 20080108, end: 20090801
  5. AVONEX [Suspect]
     Route: 030
     Dates: start: 20090829
  6. REBIF [Concomitant]
     Indication: MULTIPLE SCLEROSIS
  7. COPAXONE [Concomitant]
     Indication: MULTIPLE SCLEROSIS

REACTIONS (6)
  - COLITIS ISCHAEMIC [None]
  - COLONIC STENOSIS [None]
  - INFLUENZA LIKE ILLNESS [None]
  - RED BLOOD CELL COUNT DECREASED [None]
  - THROMBOSIS [None]
  - WHITE BLOOD CELL COUNT DECREASED [None]
